FAERS Safety Report 8975599 (Version 2)
Quarter: 2013Q1

REPORT INFORMATION
  Report Type: Spontaneous
  Country: CA (occurrence: CA)
  Receive Date: 20121219
  Receipt Date: 20130104
  Transmission Date: 20140127
  Serious: Yes (Hospitalization)
  Sender: FDA-Public Use
  Company Number: CA-AMGEN-CANSP2012047825

PATIENT
  Age: 66 Year
  Sex: Female
  Weight: 52.15 kg

DRUGS (1)
  1. PROLIA [Suspect]
     Indication: OSTEOPOROSIS
     Dosage: 60 MG, Q6MO
     Route: 058
     Dates: start: 20120301

REACTIONS (4)
  - Mental disorder [Unknown]
  - Nausea [Not Recovered/Not Resolved]
  - Oesophageal candidiasis [Unknown]
  - Hypoaesthesia [Not Recovered/Not Resolved]
